FAERS Safety Report 4478230-2 (Version None)
Quarter: 2004Q4

REPORT INFORMATION
  Report Type: 
  Country: None (occurrence: None)
  Receive Date: 20041018
  Receipt Date: 20041018
  Transmission Date: 20050328
  Serious: Yes (Hospitalization)
  Sender: FDA-Public Use
  Company Number: None

PATIENT
  Age: 80 Year
  Sex: Male

DRUGS (13)
  1. AGGRENOX [Suspect]
     Indication: CEREBROVASCULAR ACCIDENT
     Dosage: 1 BID
  2. VIOXX [Suspect]
     Indication: OSTEOARTHRITIS
     Dosage: 25MG QD
  3. PLENDIL [Concomitant]
  4. PEPTO BISMOL [Concomitant]
  5. ALKA SELTZER [Concomitant]
  6. ENALAPRIL MALEATE [Concomitant]
  7. ZOCOR [Concomitant]
  8. ARICEPT [Concomitant]
  9. ZOLOFT [Concomitant]
  10. KCL TAB [Concomitant]
  11. LASIX [Concomitant]
  12. ALLEGRA [Concomitant]
  13. M.V.I. [Concomitant]

REACTIONS (4)
  - ASTHENIA [None]
  - HAEMATEMESIS [None]
  - MELAENA [None]
  - ULCER [None]
